FAERS Safety Report 7001855-7 (Version None)
Quarter: 2010Q3

REPORT INFORMATION
  Report Type: 
  Country: None (occurrence: None)
  Receive Date: 20100920
  Receipt Date: 20100909
  Transmission Date: 20110219
  Serious: Yes (Disabling, Other)
  Sender: FDA-Public Use
  Company Number: PHHY2010US54907

PATIENT
  Sex: Female

DRUGS (2)
  1. GLEEVEC [Suspect]
     Indication: NEOPLASM MALIGNANT
     Dosage: 800 MG DAILY
     Route: 048
  2. GLEEVEC [Suspect]
     Dosage: UNK
     Dates: start: 20100708

REACTIONS (7)
  - EYE SWELLING [None]
  - FLATULENCE [None]
  - MICTURITION DISORDER [None]
  - NAUSEA [None]
  - PANIC ATTACK [None]
  - RASH GENERALISED [None]
  - VOMITING [None]
